FAERS Safety Report 8903038 (Version 1)
Quarter: 2012Q4

REPORT INFORMATION
  Report Type: 
  Country: US (occurrence: US)
  Receive Date: 20121112
  Receipt Date: 20121112
  Transmission Date: 20130627
  Serious: Yes (Other)
  Sender: FDA-Public Use
  Company Number: US-ELI_LILLY_AND_COMPANY-US201208007980

PATIENT
  Sex: Female
  Weight: 66.21 kg

DRUGS (15)
  1. CYMBALTA [Suspect]
     Indication: FIBROMYALGIA
     Dosage: 30 mg, qd
     Route: 065
  2. CYMBALTA [Suspect]
     Dosage: 30 mg, bid
     Route: 048
     Dates: end: 20120730
  3. FLEXERIL [Concomitant]
  4. GABAPENTIN [Concomitant]
  5. TRAMADOL [Concomitant]
  6. TYLENOL                                 /SCH/ [Concomitant]
  7. FISH OIL [Concomitant]
  8. COLACE [Concomitant]
  9. OMEGA 3 [Concomitant]
  10. HYDROCHLOORTHIAZIDE [Concomitant]
  11. LISINOPRIL [Concomitant]
  12. PREMARIN [Concomitant]
  13. VITAMIN E [Concomitant]
  14. VITAMIN D [Concomitant]
  15. VITAMIN A [Concomitant]

REACTIONS (5)
  - Hypersensitivity [Recovered/Resolved]
  - Somnolence [Recovered/Resolved]
  - Intentional drug misuse [Unknown]
  - Palpitations [Unknown]
  - Tremor [Unknown]
